FAERS Safety Report 11929539 (Version 1)
Quarter: 2016Q1

REPORT INFORMATION
  Report Type: Spontaneous
  Country: CA (occurrence: CA)
  Receive Date: 20160120
  Receipt Date: 20160120
  Transmission Date: 20160526
  Serious: Yes (Other)
  Sender: FDA-Public Use
  Company Number: CA-TEVA-627196ACC

PATIENT
  Age: 12 Year
  Sex: Male
  Weight: 41 kg

DRUGS (2)
  1. ALLERNIX [Concomitant]
  2. CITALOPRAM [Suspect]
     Active Substance: CITALOPRAM HYDROBROMIDE
     Indication: ANXIETY
     Dosage: 15 MILLIGRAM DAILY;
     Route: 048

REACTIONS (2)
  - Neutropenia [Recovered/Resolved]
  - Anger [Recovered/Resolved]
